FAERS Safety Report 17227579 (Version 2)
Quarter: 2022Q2

REPORT INFORMATION
  Report Type: Other
  Country: US (occurrence: None)
  Receive Date: 20200103
  Receipt Date: 20220607
  Transmission Date: 20220721
  Serious: Yes (Other)
  Sender: FDA-Public Use
  Company Number: US-ROCHE-2406921

PATIENT
  Age: 63 Year
  Sex: Female
  Weight: 62.652 kg

DRUGS (11)
  1. OCREVUS [Suspect]
     Active Substance: OCRELIZUMAB
     Indication: Relapsing multiple sclerosis
     Dosage: 300 MG DAY 1 AND DAY 15 THEN INFUSE 600MG INTRAVENOUSLY EVERY 6 MONTH(S)
     Route: 042
  2. OCREVUS [Suspect]
     Active Substance: OCRELIZUMAB
     Indication: Relapsing-remitting multiple sclerosis
     Route: 042
     Dates: start: 201811
  3. OCREVUS [Suspect]
     Active Substance: OCRELIZUMAB
     Route: 042
     Dates: start: 20171101
  4. OCREVUS [Suspect]
     Active Substance: OCRELIZUMAB
     Route: 042
     Dates: start: 201710
  5. TRAMADOL [Concomitant]
     Active Substance: TRAMADOL
     Indication: Arthralgia
  6. TIMOLOL [Concomitant]
     Active Substance: TIMOLOL
     Indication: Glaucoma
  7. BIOTIN [Concomitant]
     Active Substance: BIOTIN
  8. VITAMIN D3 [Concomitant]
     Active Substance: CHOLECALCIFEROL
  9. LOSARTAN [Concomitant]
     Active Substance: LOSARTAN
  10. AMLODIPINE [Concomitant]
     Active Substance: AMLODIPINE BESYLATE
  11. BACLOFEN [Concomitant]
     Active Substance: BACLOFEN
     Indication: Muscle spasms

REACTIONS (9)
  - Cataract [Not Recovered/Not Resolved]
  - Road traffic accident [Unknown]
  - Breast tenderness [Recovered/Resolved]
  - Arthralgia [Recovered/Resolved]
  - Influenza [Not Recovered/Not Resolved]
  - Eye haemorrhage [Unknown]
  - Chest pain [Not Recovered/Not Resolved]
  - Astigmatism [Unknown]
  - Weight increased [Unknown]

NARRATIVE: CASE EVENT DATE: 20190610
